FAERS Safety Report 6256408-5 (Version None)
Quarter: 2009Q2

REPORT INFORMATION
  Report Type: 
  Country: None (occurrence: None)
  Receive Date: 20090630
  Receipt Date: 20090630
  Transmission Date: 20091009
  Serious: Yes (Other)
  Sender: FDA-Public Use
  Company Number: None

PATIENT
  Sex: Female
  Weight: 63.5036 kg

DRUGS (1)
  1. SIMVASTATIN [Suspect]
     Indication: BLOOD CHOLESTEROL
     Dosage: TAKE 1 TABLET DAILY
     Dates: start: 20090311, end: 20090321

REACTIONS (4)
  - CHEST PAIN [None]
  - CHOKING [None]
  - EAR PAIN [None]
  - PRODUCT SUBSTITUTION ISSUE [None]
